FAERS Safety Report 8415251-9 (Version None)
Quarter: 2012Q2

REPORT INFORMATION
  Report Type: 
  Country: None (occurrence: None)
  Receive Date: 20120323
  Receipt Date: 20111222
  Transmission Date: 20120825
  Serious: Yes (Hospitalization, Other)
  Sender: FDA-Public Use
  Company Number: 163-21880-11121163

PATIENT
  Age: 79 Year
  Sex: Female
  Weight: 61.2356 kg

DRUGS (9)
  1. REVLIMID [Suspect]
     Indication: MULTIPLE MYELOMA
     Dosage: 10 MG, QD X 21 DAYS, PO
     Route: 048
     Dates: start: 20111112, end: 20111127
  2. LORAZEPAM [Concomitant]
  3. AMLODIPINE [Concomitant]
  4. VALSARTAN [Concomitant]
  5. OMEGA 3 (FISH OIL) (UNKNOWN) [Concomitant]
  6. LAXATIVE (SENNOSIDE A+B) (UNKNOWN) [Concomitant]
  7. ROSUVASTATIN (ROSUVASTATIN) (UNKNOWN) [Concomitant]
  8. ASPIRIN [Concomitant]
  9. INSULIN (INSULIN) (UNKNOWN) [Concomitant]

REACTIONS (3)
  - RIB FRACTURE [None]
  - MULTIPLE MYELOMA [None]
  - HIP FRACTURE [None]
